FAERS Safety Report 5745848-6 (Version None)
Quarter: 2008Q2

REPORT INFORMATION
  Report Type: 
  Country: None (occurrence: None)
  Receive Date: 20080520
  Receipt Date: 20080507
  Transmission Date: 20081010
  Serious: Yes (Hospitalization, Disabling)
  Sender: FDA-Public Use
  Company Number: IT-JNJFOC-20070502847

PATIENT
  Age: 76 Year
  Sex: Male
  Weight: 77 kg

DRUGS (5)
  1. DECITABINE (DECITABINE) LYOPHILIZED POWDER [Suspect]
     Indication: MYELODYSPLASTIC SYNDROME
     Dosage: 28 MG, IN 1 DAY, INTRAVENOUS
     Route: 042
     Dates: start: 20070416
  2. DECITABINE (DECITABINE) LYOPHILIZED POWDER [Suspect]
  3. FLUCONAZOLE [Concomitant]
  4. AC.TRANEXAMICO (TRANEXAMIC ACID) UNSPECIFIED [Concomitant]
  5. FILGRASTIM (FILGRASTIM) UNSPECIFIED [Concomitant]

REACTIONS (6)
  - BLOOD CREATININE INCREASED [None]
  - HAEMOGLOBIN DECREASED [None]
  - NEUTROPENIA [None]
  - PNEUMONIA [None]
  - PNEUMONITIS [None]
  - THROMBOCYTOPENIA [None]
